FAERS Safety Report 8554347-8 (Version None)
Quarter: 2012Q3

REPORT INFORMATION
  Report Type: 
  Country: None (occurrence: None)
  Receive Date: 20120731
  Receipt Date: 20120723
  Transmission Date: 20120928
  Serious: Yes (Hospitalization, Other)
  Sender: FDA-Public Use
  Company Number: US-MSD-1207USA010444

PATIENT

DRUGS (13)
  1. SERTRALINE HYDROCHLORIDE [Suspect]
  2. ASPIRIN [Suspect]
  3. ZOCOR [Suspect]
     Route: 048
  4. LOSARTAN POTASSIUM [Suspect]
     Route: 048
  5. ATORVASTATIN [Suspect]
     Route: 048
  6. ENALAPRIL MALEATE [Suspect]
  7. CARDIZEM [Suspect]
     Dosage: 60 MG, UNK
  8. CLOPIDOGREL [Suspect]
  9. ZANTAC [Suspect]
  10. METFORMIN HYDROCHLORIDE [Suspect]
  11. AMAT [Suspect]
  12. DIOVAN HCT [Suspect]
     Dosage: 1 DF, QD
  13. OMEPRAZOLE [Suspect]

REACTIONS (12)
  - MALAISE [None]
  - BLOOD CHOLESTEROL INCREASED [None]
  - DYSPNOEA [None]
  - FATIGUE [None]
  - VENOUS OCCLUSION [None]
  - BLOOD PRESSURE INADEQUATELY CONTROLLED [None]
  - DIABETES MELLITUS [None]
  - DRY MOUTH [None]
  - INSOMNIA [None]
  - OSTEOARTHRITIS [None]
  - SPEECH DISORDER [None]
  - CHEST PAIN [None]
